FAERS Safety Report 10056889 (Version 1)
Quarter: 2014Q2

REPORT INFORMATION
  Report Type: Spontaneous
  Country: US (occurrence: US)
  Receive Date: 20140403
  Receipt Date: 20140403
  Transmission Date: 20141212
  Serious: No
  Sender: FDA-Public Use
  Company Number: US-BAYER-2014-041638

PATIENT
  Age: 76 Year
  Sex: Male
  Weight: 97 kg

DRUGS (12)
  1. ALEVE CAPLET [Suspect]
     Indication: PAIN IN EXTREMITY
     Dosage: 1 UNK, UNK,1-2
     Route: 048
     Dates: start: 2014
  2. ALEVE CAPLET [Suspect]
     Indication: RESTLESS LEGS SYNDROME
  3. CYMBALTA [Concomitant]
  4. NIFEDIPINE [Concomitant]
  5. LISINOPRIL [Concomitant]
     Dosage: UNK
  6. GABAPENTIN [Concomitant]
     Dosage: UNK
  7. OMEPRAZOLE [Concomitant]
  8. ALLOPURINOL [Concomitant]
  9. PRAMIPEXOLE [Concomitant]
  10. LORAZEPAM [Concomitant]
     Dosage: UNK
  11. TEMAZEPAM [Concomitant]
     Dosage: UNK
  12. ASPIRIN [Concomitant]

REACTIONS (4)
  - Off label use [None]
  - Drug ineffective [None]
  - Incorrect dose administered [None]
  - Incorrect drug administration duration [None]
